FAERS Safety Report 5151119-1 (Version None)
Quarter: 2006Q4

REPORT INFORMATION
  Report Type: 
  Country: None (occurrence: None)
  Receive Date: 20061115
  Receipt Date: 20061106
  Transmission Date: 20070319
  Serious: Yes (Hospitalization)
  Sender: FDA-Public Use
  Company Number: DE-JNJFOC-20061101601

PATIENT
  Sex: Male

DRUGS (33)
  1. RISPERDAL [Suspect]
     Route: 048
     Dates: start: 20060908, end: 20060915
  2. RISPERDAL [Suspect]
     Route: 048
     Dates: start: 20060908, end: 20060915
  3. RISPERDAL [Suspect]
     Indication: PSYCHOTIC DISORDER
     Route: 048
     Dates: start: 20060908, end: 20060915
  4. RISPERDAL [Suspect]
     Indication: DEPRESSION
     Route: 048
     Dates: start: 20060908, end: 20060915
  5. VENLAFAXINE HCL [Concomitant]
     Route: 048
  6. VENLAFAXINE HCL [Concomitant]
     Route: 048
  7. VENLAFAXINE HCL [Concomitant]
     Route: 048
  8. MIRTAZAPINE [Concomitant]
     Route: 048
  9. MIRTAZAPINE [Concomitant]
     Route: 048
  10. MIRTAZAPINE [Concomitant]
     Route: 048
  11. SEROQUEL [Concomitant]
     Route: 048
  12. SEROQUEL [Concomitant]
     Route: 048
  13. SEROQUEL [Concomitant]
     Route: 048
  14. SEROQUEL [Concomitant]
     Route: 048
  15. SEROQUEL [Concomitant]
     Route: 048
  16. SEROQUEL [Concomitant]
     Route: 048
  17. SEROQUEL [Concomitant]
     Route: 048
  18. SEROQUEL [Concomitant]
     Route: 048
  19. SEROQUEL [Concomitant]
     Route: 048
  20. SEROQUEL [Concomitant]
     Route: 048
  21. SEROQUEL [Concomitant]
     Route: 048
  22. SEROQUEL [Concomitant]
     Route: 048
  23. SEROQUEL [Concomitant]
     Route: 048
  24. TAVOR [Concomitant]
     Route: 048
  25. TAVOR [Concomitant]
     Route: 048
  26. TAVOR [Concomitant]
     Route: 048
  27. TAVOR [Concomitant]
     Route: 048
  28. DELIX [Concomitant]
     Route: 048
  29. DELIX [Concomitant]
     Route: 048
  30. ASPIRIN [Concomitant]
     Route: 048
  31. CORVATON [Concomitant]
     Route: 048
  32. ALLOPURINOL [Concomitant]
     Route: 048
  33. ALLOPURINOL [Concomitant]
     Route: 048

REACTIONS (1)
  - DEPRESSION [None]
